FAERS Safety Report 15360271 (Version 1)
Quarter: 2018Q3

REPORT INFORMATION
  Report Type: Report from Study
  Country: US (occurrence: US)
  Receive Date: 20180907
  Receipt Date: 20180907
  Transmission Date: 20181010
  Serious: Yes (Other)
  Sender: FDA-Public Use
  Company Number: US-TESARO, INC-US-2018TSO03842

PATIENT
  Age: 65 Year
  Sex: Female

DRUGS (2)
  1. ZEJULA [Suspect]
     Active Substance: NIRAPARIB
     Dosage: 300 MG, QD
     Route: 048
  2. ZEJULA [Suspect]
     Active Substance: NIRAPARIB
     Indication: OVARIAN CANCER
     Dosage: 300 MG, QD
     Route: 048
     Dates: start: 20180606

REACTIONS (15)
  - Rotator cuff syndrome [Recovering/Resolving]
  - Retching [Not Recovered/Not Resolved]
  - Nausea [Recovered/Resolved]
  - Depression [Unknown]
  - Dizziness [Not Recovered/Not Resolved]
  - Arthritis [Recovering/Resolving]
  - Frustration tolerance decreased [Unknown]
  - Carbohydrate antigen 125 increased [Not Recovered/Not Resolved]
  - Drug dose omission [Recovered/Resolved]
  - Malaise [Unknown]
  - Performance status decreased [Unknown]
  - Lymphadenopathy [Not Recovered/Not Resolved]
  - Exostosis [Not Recovered/Not Resolved]
  - Ovarian disorder [Not Recovered/Not Resolved]
  - Blood pressure increased [Not Recovered/Not Resolved]

NARRATIVE: CASE EVENT DATE: 201807
